FAERS Safety Report 19076894 (Version 1)
Quarter: 2021Q1

REPORT INFORMATION
  Report Type: Other
  Country: FR (occurrence: FR)
  Receive Date: 20210331
  Receipt Date: 20210331
  Transmission Date: 20210420
  Serious: Yes (Death)
  Sender: FDA-Public Use
  Company Number: FR-CADILA HEALTHCARE LIMITED-FR-ZYDUS-063576

PATIENT

DRUGS (3)
  1. ASPEGIC [ACETYLSALICYLATE LYSINE] [Suspect]
     Active Substance: ASPIRIN DL-LYSINE
     Indication: ANEURYSM REPAIR
     Dosage: 250 MILLIGRAM
     Route: 048
  2. RAMIPRIL. [Suspect]
     Active Substance: RAMIPRIL
     Indication: HYPERTENSION
     Dosage: UNK
     Route: 048
  3. EFIENT [Suspect]
     Active Substance: PRASUGREL HYDROCHLORIDE
     Indication: ANEURYSM REPAIR
     Dosage: 10 MILLIGRAM
     Route: 048
     Dates: start: 20201106

REACTIONS (1)
  - Meningorrhagia [Fatal]

NARRATIVE: CASE EVENT DATE: 20210127
